FAERS Safety Report 14177757 (Version 1)
Quarter: 2017Q4

REPORT INFORMATION
  Report Type: Spontaneous
  Country: DE (occurrence: DE)
  Receive Date: 20171110
  Receipt Date: 20171110
  Transmission Date: 20180321
  Serious: Yes (Hospitalization, Other)
  Sender: FDA-Public Use
  Company Number: DE-XIROMED, LLC-XIRO20170474

PATIENT
  Age: 19 Year
  Sex: Female

DRUGS (1)
  1. ETHINYL ESTRADIOL\LEVONORGESTREL [Suspect]
     Active Substance: ETHINYL ESTRADIOL\LEVONORGESTREL
     Indication: ORAL CONTRACEPTION
     Dosage: 1 DF (LEVONORGESTREL 0.10 MG/ETHINYLESTRADIOL 0.02 MG)
     Route: 048
     Dates: start: 201510, end: 201603

REACTIONS (10)
  - Appendicitis [Recovered/Resolved]
  - Abdominal rigidity [Recovering/Resolving]
  - Fallopian tube cyst [Unknown]
  - Abdominal pain [Recovering/Resolving]
  - Constipation [Recovering/Resolving]
  - Discomfort [Recovering/Resolving]
  - Appendiceal abscess [Recovered/Resolved]
  - Weight increased [Unknown]
  - Diarrhoea [Recovering/Resolving]
  - Lymphadenitis [Unknown]

NARRATIVE: CASE EVENT DATE: 2015
